FAERS Safety Report 25735060 (Version 1)
Quarter: 2025Q3

REPORT INFORMATION
  Report Type: Report from Study
  Country: JP (occurrence: JP)
  Receive Date: 20250828
  Receipt Date: 20250828
  Transmission Date: 20251021
  Serious: Yes (Other)
  Sender: MALLINCKRODT
  Company Number: JP-MALLINCKRODT-MNK202505241

PATIENT
  Sex: Male
  Weight: 3 kg

DRUGS (2)
  1. NITRIC OXIDE [Suspect]
     Active Substance: NITRIC OXIDE
     Indication: Hypoxic-ischaemic encephalopathy
     Route: 055
  2. NITRIC OXIDE [Suspect]
     Active Substance: NITRIC OXIDE
     Indication: Newborn persistent pulmonary hypertension

REACTIONS (6)
  - Cerebral atrophy [Unknown]
  - Pulmonary hypertension [Unknown]
  - Gait disturbance [Unknown]
  - Speech disorder [Unknown]
  - Cytogenetic abnormality [Unknown]
  - Hypotension [Unknown]
